FAERS Safety Report 12722414 (Version 1)
Quarter: 2016Q3

REPORT INFORMATION
  Report Type: Spontaneous
  Country: US (occurrence: JP)
  Receive Date: 20160907
  Receipt Date: 20160907
  Transmission Date: 20161109
  Serious: Yes (Other)
  Sender: FDA-Public Use
  Company Number: JP-FRI-1000087080

PATIENT
  Age: 35 Year
  Sex: Male

DRUGS (1)
  1. ASENAPINE [Suspect]
     Active Substance: ASENAPINE
     Indication: SCHIZOPHRENIA
     Dosage: 10 MG
     Route: 060
     Dates: start: 20160604, end: 20160610

REACTIONS (4)
  - Dizziness postural [Recovered/Resolved]
  - Male sexual dysfunction [Recovered/Resolved]
  - Dizziness [Recovered/Resolved]
  - Diplopia [Recovered/Resolved]

NARRATIVE: CASE EVENT DATE: 20160605
